FAERS Safety Report 24000547 (Version 1)
Quarter: 2024Q2

REPORT INFORMATION
  Report Type: Spontaneous
  Country: TR (occurrence: TR)
  Receive Date: 20240621
  Receipt Date: 20240621
  Transmission Date: 20240715
  Serious: Yes (Other)
  Sender: FDA-Public Use
  Company Number: TR-MEITHEAL-2024MPLIT00172

PATIENT
  Age: 9 Year
  Sex: Female

DRUGS (1)
  1. LEUPROLIDE [Suspect]
     Active Substance: LEUPROLIDE
     Indication: Precocious puberty
     Route: 030

REACTIONS (1)
  - Embolia cutis medicamentosa [Recovering/Resolving]
